FAERS Safety Report 6196397-5 (Version None)
Quarter: 2009Q2

REPORT INFORMATION
  Report Type: 
  Country: None (occurrence: None)
  Receive Date: 20090520
  Receipt Date: 20070507
  Transmission Date: 20091009
  Serious: Yes (Hospitalization, Other)
  Sender: FDA-Public Use
  Company Number: US-ASTRAZENECA-2006UW21067

PATIENT
  Age: 51 Year
  Sex: Male
  Weight: 97.1 kg

DRUGS (81)
  1. SEROQUEL [Suspect]
     Indication: DEPRESSION
     Route: 048
  2. SEROQUEL [Suspect]
     Indication: ANXIETY
     Route: 048
  3. SEROQUEL [Suspect]
     Indication: THOUGHT BLOCKING
     Route: 048
  4. SEROQUEL [Suspect]
     Indication: INSOMNIA
     Route: 048
  5. SEROQUEL [Suspect]
     Route: 048
  6. SEROQUEL [Suspect]
     Route: 048
  7. SEROQUEL [Suspect]
     Route: 048
  8. SEROQUEL [Suspect]
     Route: 048
  9. SEROQUEL [Suspect]
     Route: 048
  10. SEROQUEL [Suspect]
     Route: 048
  11. SEROQUEL [Suspect]
     Route: 048
  12. SEROQUEL [Suspect]
     Route: 048
  13. SEROQUEL [Suspect]
     Route: 048
  14. SEROQUEL [Suspect]
     Route: 048
  15. SEROQUEL [Suspect]
     Route: 048
  16. SEROQUEL [Suspect]
     Route: 048
  17. SEROQUEL [Suspect]
     Dosage: 25 MG TO 400 MG
     Route: 048
     Dates: start: 19981102, end: 20080413
  18. SEROQUEL [Suspect]
     Dosage: 25 MG TO 400 MG
     Route: 048
     Dates: start: 19981102, end: 20080413
  19. SEROQUEL [Suspect]
     Dosage: 25 MG TO 400 MG
     Route: 048
     Dates: start: 19981102, end: 20080413
  20. SEROQUEL [Suspect]
     Dosage: 25 MG TO 400 MG
     Route: 048
     Dates: start: 19981102, end: 20080413
  21. CYCLOBENZAPRINE HCL [Concomitant]
     Indication: BACK PAIN
     Route: 048
  22. CYCLOBENZAPRINE HCL [Concomitant]
     Indication: MUSCLE RELAXANT THERAPY
     Route: 048
  23. FOSINOPRIL NA [Concomitant]
     Indication: BLOOD PRESSURE
     Dosage: 10-40 MG
     Route: 048
  24. FOSINOPRIL NA [Concomitant]
     Indication: CARDIAC DISORDER
     Dosage: 10-40 MG
     Route: 048
  25. TYLENOL [Concomitant]
     Indication: BACK PAIN
     Dosage: 500-4000 MG
     Route: 048
  26. SULINDAC [Concomitant]
     Indication: BACK PAIN
     Route: 048
  27. SULINDAC [Concomitant]
     Indication: ARTHRITIS
     Route: 048
  28. HYDROCHLOROTHIAZIDE [Concomitant]
     Indication: HYPERTENSION
     Dosage: 25-37.5 MG
     Route: 048
  29. OXYCONTIN [Concomitant]
     Dosage: 10-80 MG
     Route: 048
  30. TRAMADOL HCL [Concomitant]
     Dosage: 50 MG, TWO TABLETS TWICE A DAY
     Route: 065
  31. VALIUM [Concomitant]
     Indication: SPINAL CORD INJURY
     Dosage: 5-20 MG
     Route: 048
  32. AMITRIPTYLINE HCL [Concomitant]
     Indication: INSOMNIA
     Dosage: 25-150 MG
     Route: 048
     Dates: end: 19990212
  33. SERTRALINE HCL [Concomitant]
     Indication: DEPRESSION
     Dosage: 50-100 MG
     Route: 048
  34. SERTRALINE HCL [Concomitant]
     Indication: ANXIETY
     Dosage: 50-100 MG
     Route: 048
  35. NEFAZODONE HCL [Concomitant]
     Dosage: 300-400 MG
     Route: 048
  36. DOCUSATE NA [Concomitant]
     Indication: LAXATIVE SUPPORTIVE CARE
     Route: 048
  37. DICLOFENAC SODIUM [Concomitant]
     Indication: PAIN
     Route: 048
  38. LAMOTRIGINE [Concomitant]
     Route: 048
  39. SIMVASTATIN [Concomitant]
     Indication: BLOOD CHOLESTEROL
     Dosage: 20-80 MG
     Route: 048
  40. SALSALATE [Concomitant]
     Indication: PAIN
     Dosage: 750-4500 MG
     Route: 048
  41. BECLOMETHASONE DIPROPIONATE [Concomitant]
     Dosage: 42 MCG 200D NASAL POCKETHL, SPRAY TWO PUFFS IN EACH NOSTRIL TWICE A DAY
     Route: 045
  42. ETODOLAC [Concomitant]
     Indication: PAIN
     Dosage: 300 MG TWO CAPSULE TWICE A DAY
     Route: 048
  43. FEXOFENADINE HCL [Concomitant]
     Route: 065
  44. MILK OF MAGNESIA TAB [Concomitant]
     Indication: CONSTIPATION
     Dosage: ONE TABLESPOONFUL AT BEDTIME
     Route: 048
  45. WELLBUTRIN SR [Concomitant]
     Indication: DEPRESSION
     Dosage: 150-600 MG
     Route: 048
  46. WELLBUTRIN SR [Concomitant]
     Indication: SMOKING CESSATION THERAPY
     Dosage: 150-600 MG
     Route: 048
  47. PROPRANOLOL HYDROCHLORIDE [Concomitant]
     Indication: BLOOD PRESSURE
     Route: 048
  48. PROPRANOLOL HYDROCHLORIDE [Concomitant]
     Route: 048
  49. PSYLLIUM SUGAR FREE [Concomitant]
     Dosage: 1 TABLESPOONFUL IN WATER AND TAKE BY MOUTH TWICE A DAY
     Route: 048
  50. METFORMIN HCL [Concomitant]
     Indication: BLOOD GLUCOSE INCREASED
     Route: 048
  51. DEXBROMPHENIRAMINE [Concomitant]
     Indication: SINUS CONGESTION
     Dosage: 6/ PSEUDO 120 MG SA, TAKE 1 TABLET TWICE A DAY
     Route: 048
  52. DEXBROMPHENIRAMINE [Concomitant]
     Indication: CHEST DISCOMFORT
     Dosage: 6/ PSEUDO 120 MG SA, TAKE 1 TABLET TWICE A DAY
     Route: 048
  53. GLIPIZIDE [Concomitant]
     Indication: BLOOD GLUCOSE INCREASED
     Dosage: 5-10 MG
     Route: 048
  54. TEMAZEPAM [Concomitant]
     Dosage: 15-30 MG
     Route: 048
  55. PSEUDOEPHEDRINE HCL [Concomitant]
     Indication: SINUS CONGESTION
     Dosage: 60-300 MG
     Route: 048
  56. GABAPENTIN [Concomitant]
     Indication: PAIN
     Dosage: 300-1800 MG
     Route: 048
  57. GABAPENTIN [Concomitant]
     Indication: NEUROPATHY PERIPHERAL
     Dosage: 300-1800 MG
     Route: 048
  58. PERCOCET [Concomitant]
     Indication: PAIN
     Dosage: 1-2 TAB EVERY 4-6 HOURS, 1 TAB EVERY 3-4 HOURS
     Route: 048
  59. TRAZODONE HCL [Concomitant]
     Indication: SLEEP DISORDER
     Dosage: 50-150 MG
     Route: 048
  60. TRAZODONE HCL [Concomitant]
     Indication: DEPRESSION
     Dosage: 50-150 MG
     Route: 048
  61. TRAZODONE HCL [Concomitant]
     Indication: ANXIETY
     Dosage: 50-150 MG
     Route: 048
  62. RISPERIDONE [Concomitant]
     Route: 048
  63. NAPROXEN [Concomitant]
     Indication: ARTHRALGIA
     Dosage: 250-1000 MG
     Route: 048
  64. ZANTAC [Concomitant]
     Indication: DYSPEPSIA
     Route: 048
  65. BISACODYL [Concomitant]
     Dosage: 5 MG TWO TABLETS AS DIRECTED, 5 MG 1 TABLET TWICE A DAY
     Route: 048
  66. CARISOPRODOL [Concomitant]
     Indication: BACK PAIN
     Route: 048
  67. CARISOPRODOL [Concomitant]
     Indication: RADICULOPATHY
     Route: 048
  68. DIPHENHYDRAMINE HCL [Concomitant]
     Indication: INSOMNIA
     Route: 048
  69. SIMETHICON [Concomitant]
     Route: 048
  70. CALCIUM CARBONATE [Concomitant]
     Route: 048
  71. CITALOPRAM HYDROBROMIDE [Concomitant]
     Indication: DEPRESSION
     Dosage: 40 MG, ONE-HALF TABLET EVERY DAY
     Route: 048
  72. CITALOPRAM HYDROBROMIDE [Concomitant]
     Indication: ANXIETY
     Dosage: 40 MG, ONE-HALF TABLET EVERY DAY
     Route: 048
  73. ASPIRIN [Concomitant]
     Indication: PAIN
     Route: 048
  74. ASPIRIN [Concomitant]
     Indication: PYREXIA
     Route: 048
  75. ASPIRIN [Concomitant]
     Indication: CARDIAC DISORDER
     Route: 048
  76. NEPHRO-VITE [Concomitant]
     Dosage: 1 TABLET EVERY DAY
     Route: 048
  77. FLUNISOLIDE [Concomitant]
     Dosage: 25 MCG 200D NASAL INH, SPRAY 2 SPRAYS IN EACH NOSTRIL TWICE A DAY
     Route: 045
  78. MIRTAZAPINE [Concomitant]
     Indication: DEPRESSION
     Dosage: 15 MG, ONE-HALF TABLET AT BEDTIME
     Route: 048
  79. MIRTAZAPINE [Concomitant]
     Indication: ANXIETY
     Dosage: 15 MG, ONE-HALF TABLET AT BEDTIME
     Route: 048
  80. MIRTAZAPINE [Concomitant]
     Indication: SLEEP DISORDER
     Dosage: 15 MG, ONE-HALF TABLET AT BEDTIME
     Route: 048
  81. APAP325/PHENYLTOLOXAMINE [Concomitant]
     Indication: ARTHRALGIA
     Dosage: 325/30 MG, 2 TABLETS THREE TIMES A DAY
     Route: 048

REACTIONS (37)
  - ADJUSTMENT DISORDER [None]
  - ARTHRALGIA [None]
  - ARTHROPATHY [None]
  - BACK PAIN [None]
  - BLINDNESS [None]
  - BURSITIS [None]
  - CERVICOBRACHIAL SYNDROME [None]
  - DIABETES MELLITUS [None]
  - DIVERTICULUM [None]
  - EPICONDYLITIS [None]
  - FAECAL INCONTINENCE [None]
  - FIBROSIS [None]
  - FOREIGN BODY IN EYE [None]
  - GINGIVITIS [None]
  - HAEMORRHOIDS [None]
  - HYPERGLYCAEMIA [None]
  - HYPERMETROPIA [None]
  - HYPERTHYROIDISM [None]
  - HYPERTROPHY [None]
  - HYPOKALAEMIA [None]
  - INTERVERTEBRAL DISC PROTRUSION [None]
  - IRON DEFICIENCY ANAEMIA [None]
  - LUMBAR RADICULOPATHY [None]
  - METABOLIC SYNDROME [None]
  - NEURALGIA [None]
  - OSTEOARTHRITIS [None]
  - PAIN IN EXTREMITY [None]
  - PHOTOPHOBIA [None]
  - PLANTAR FASCIITIS [None]
  - POST LAMINECTOMY SYNDROME [None]
  - POST-TRAUMATIC STRESS DISORDER [None]
  - RADICULAR SYNDROME [None]
  - RHINITIS ALLERGIC [None]
  - SACROILIITIS [None]
  - SCHIZOTYPAL PERSONALITY DISORDER [None]
  - SCIATIC NERVE NEUROPATHY [None]
  - URINARY INCONTINENCE [None]
